FAERS Safety Report 7889875-1 (Version None)
Quarter: 2011Q4

REPORT INFORMATION
  Report Type: 
  Country: None (occurrence: None)
  Receive Date: 20111103
  Receipt Date: 20111025
  Transmission Date: 20120403
  Serious: Yes (Hospitalization)
  Sender: FDA-Public Use
  Company Number: JP-GLAXOSMITHKLINE-B0749718A

PATIENT
  Sex: Female
  Weight: 48 kg

DRUGS (6)
  1. VALTREX [Suspect]
     Indication: ORAL HERPES
     Dosage: 3G PER DAY
     Route: 048
     Dates: start: 20110914, end: 20110917
  2. INDAPAMIDE [Suspect]
     Indication: HYPERTENSION
     Dosage: 1MG PER DAY
     Route: 048
     Dates: start: 20070101
  3. PRAVASTATIN SODIUM [Concomitant]
     Indication: HYPERLIPIDAEMIA
     Dosage: 5MG PER DAY
     Route: 048
     Dates: start: 20070101
  4. NATEGLINIDE [Concomitant]
     Indication: DIABETES MELLITUS
     Dosage: 270MG PER DAY
     Route: 048
     Dates: start: 20070101
  5. AMLODIPINE BESYLATE [Concomitant]
     Indication: HYPERTENSION
     Dosage: 5MG PER DAY
     Route: 048
     Dates: start: 20070101, end: 20090918
  6. UBRETID [Concomitant]
     Indication: URINARY RETENTION
     Dosage: 5MG PER DAY
     Route: 048
     Dates: start: 20070301

REACTIONS (2)
  - ALTERED STATE OF CONSCIOUSNESS [None]
  - RENAL FAILURE ACUTE [None]
